FAERS Safety Report 13195486 (Version 1)
Quarter: 2017Q1

REPORT INFORMATION
  Report Type: Spontaneous
  Country: US (occurrence: US)
  Receive Date: 20170208
  Receipt Date: 20170208
  Transmission Date: 20170428
  Serious: Yes (Hospitalization, Other)
  Sender: FDA-Public Use
  Company Number: US-009507513-1702USA002496

PATIENT
  Age: 64 Year
  Sex: Male

DRUGS (8)
  1. FENTANYL. [Concomitant]
     Active Substance: FENTANYL
  2. ACETAMINOPHEN (+) HYDROCODONE BITARTRATE [Concomitant]
     Active Substance: ACETAMINOPHEN\HYDROCODONE BITARTRATE
  3. OMEPRAZOLE. [Concomitant]
     Active Substance: OMEPRAZOLE
  4. TEMAZEPAM. [Concomitant]
     Active Substance: TEMAZEPAM
  5. MONTELUKAST SODIUM. [Concomitant]
     Active Substance: MONTELUKAST SODIUM
     Route: 048
  6. HYDROMORPHONE [Concomitant]
     Active Substance: HYDROMORPHONE
  7. LORAZEPAM. [Concomitant]
     Active Substance: LORAZEPAM
  8. KEYTRUDA [Suspect]
     Active Substance: PEMBROLIZUMAB
     Indication: METASTATIC MALIGNANT MELANOMA
     Dosage: 2 MG/KG EVERY 3 WEEKS
     Dates: start: 201509

REACTIONS (1)
  - Tubulointerstitial nephritis [Recovered/Resolved]
